FAERS Safety Report 16268222 (Version 1)
Quarter: 2019Q2

REPORT INFORMATION
  Report Type: Spontaneous
  Country: US (occurrence: US)
  Receive Date: 20190503
  Receipt Date: 20190503
  Transmission Date: 20190711
  Serious: No
  Sender: FDA-Public Use
  Company Number: US-LUPIN PHARMACEUTICALS INC.-2019-00359

PATIENT
  Sex: Male

DRUGS (2)
  1. OSELTAMIVIR PHOSPHATE CAPSULES USP, 75 MG (BASE) [Suspect]
     Active Substance: OSELTAMIVIR PHOSPHATE
     Indication: INFLUENZA
     Dosage: 75 MG, QD (1 CAPSULE ONCE A DAY FOR 3 DAYS)
     Route: 065
  2. OSELTAMIVIR PHOSPHATE CAPSULES USP, 75 MG (BASE) [Suspect]
     Active Substance: OSELTAMIVIR PHOSPHATE
     Dosage: 2 DF, QD (TWO CAPSULES AT ONCE)
     Route: 065
     Dates: start: 20190117

REACTIONS (3)
  - Extra dose administered [Unknown]
  - No adverse event [Unknown]
  - Underdose [Unknown]
